FAERS Safety Report 17327598 (Version 2)
Quarter: 2020Q1

REPORT INFORMATION
  Report Type: Report from Study
  Country: US (occurrence: US)
  Receive Date: 20200127
  Receipt Date: 20200205
  Transmission Date: 20200409
  Serious: Yes (Hospitalization)
  Sender: FDA-Public Use
  Company Number: NVSC2020US019903

PATIENT
  Sex: Male
  Weight: 84 kg

DRUGS (109)
  1. MEROPENEM. [Concomitant]
     Active Substance: MEROPENEM
     Indication: PSEUDOMONAS INFECTION
     Dosage: 2000 MILLIGRAM, Q8H
     Route: 042
     Dates: start: 20190809, end: 20190826
  2. MEROPENEM. [Concomitant]
     Active Substance: MEROPENEM
     Dosage: 2000 MILLIGRAM, QID
     Route: 042
     Dates: start: 20181228, end: 20190110
  3. MEROPENEM. [Concomitant]
     Active Substance: MEROPENEM
     Dosage: 2 GRAM, Q8H
     Route: 042
     Dates: start: 20180830, end: 20180913
  4. SODIUM CHLORIDE. [Concomitant]
     Active Substance: SODIUM CHLORIDE
     Dosage: 10 MILLILITER, QW
     Route: 042
     Dates: start: 20181228, end: 20190110
  5. COLISTIN [Concomitant]
     Active Substance: COLISTIN
     Indication: INFECTIVE PULMONARY EXACERBATION OF CYSTIC FIBROSIS
     Dosage: 70 MILLIGRAM, Q8H
     Route: 042
     Dates: start: 20191017, end: 20191023
  6. LOVENOX [Concomitant]
     Active Substance: ENOXAPARIN SODIUM
     Indication: THROMBOSIS PROPHYLAXIS
     Dosage: 40 MILLIGRAM, QD
     Route: 058
     Dates: start: 20190325, end: 20190328
  7. DEXAMETHASONE. [Concomitant]
     Active Substance: DEXAMETHASONE
     Indication: PROPHYLAXIS
     Dosage: 10 MILLIGRAM, QD
     Route: 042
     Dates: start: 20190705, end: 20190705
  8. TOBRAMYCIN. [Concomitant]
     Active Substance: TOBRAMYCIN
     Indication: SINUS OPERATION
     Dosage: UNK UNK, BID (80 MG/2 ML)
     Route: 065
     Dates: start: 20190708, end: 20190805
  9. TOBRAMYCIN. [Concomitant]
     Active Substance: TOBRAMYCIN
     Dosage: 730 MILLIGRAM, QD
     Route: 042
     Dates: start: 20170728, end: 20170810
  10. DOXYCYCLINE. [Concomitant]
     Active Substance: DOXYCYCLINE
     Indication: NASAL CONGESTION
     Dosage: 100 MILLIGRAM, BID
     Route: 048
     Dates: start: 20180726, end: 20180809
  11. DOXYCYCLINE. [Concomitant]
     Active Substance: DOXYCYCLINE
     Indication: COUGH
     Dosage: 100 MILLIGRAM, BID
     Route: 048
     Dates: start: 20170421, end: 20170501
  12. CELEBREX [Concomitant]
     Active Substance: CELECOXIB
     Indication: ARTHRALGIA
     Dosage: 200 MILLIGRAM, QD (PRN)
     Route: 048
     Dates: start: 20181108, end: 20181125
  13. SEPTRA DS [Concomitant]
     Active Substance: SULFAMETHOXAZOLE\TRIMETHOPRIM
     Indication: COUGH
     Dosage: 160 MILLIGRAM, BID
     Route: 048
     Dates: start: 20180430, end: 20180510
  14. AMINOPHYLLINE. [Concomitant]
     Active Substance: AMINOPHYLLINE
     Indication: DYSPNOEA
     Dosage: 125 MILLIGRAM, 1TIME
     Route: 042
     Dates: start: 20171031, end: 20171031
  15. HYDROCODONE/ACETAMINOPHEN [Concomitant]
     Active Substance: ACETAMINOPHEN\HYDROCODONE
     Indication: ARTHRALGIA
  16. CIPRO [Concomitant]
     Active Substance: CIPROFLOXACIN HYDROCHLORIDE
     Indication: INFECTIVE PULMONARY EXACERBATION OF CYSTIC FIBROSIS
     Dosage: 750 MILLIGRAM, BID
     Route: 065
     Dates: start: 20160811, end: 20160814
  17. XARELTO [Concomitant]
     Active Substance: RIVAROXABAN
     Dosage: 10 MILLIGRAM, QD
     Route: 048
     Dates: start: 20190809, end: 20190822
  18. LOVENOX [Concomitant]
     Active Substance: ENOXAPARIN SODIUM
     Dosage: 40 MILLIGRAM, QD
     Route: 058
     Dates: start: 20171028, end: 20171031
  19. NEOSTIGMINE. [Concomitant]
     Active Substance: NEOSTIGMINE METHYLSULFATE
     Indication: SURGERY
     Dosage: 5 MILLIGRAM, QD
     Route: 042
     Dates: start: 20190705, end: 20190705
  20. CEFDINIR. [Concomitant]
     Active Substance: CEFDINIR
     Indication: SINUS OPERATION
     Dosage: 300 MILLIGRAM, BID
     Route: 048
     Dates: start: 20190708, end: 20190727
  21. SEPTRA DS [Concomitant]
     Active Substance: SULFAMETHOXAZOLE\TRIMETHOPRIM
     Indication: INFECTIVE PULMONARY EXACERBATION OF CYSTIC FIBROSIS
     Dosage: 160 MILLIGRAM, BID
     Route: 065
     Dates: start: 20170215, end: 20170301
  22. CEFEPIME [Concomitant]
     Active Substance: CEFEPIME HYDROCHLORIDE
     Dosage: 2000 MILLIGRAM, TID
     Route: 042
     Dates: start: 20171031, end: 20171110
  23. BACTRIM DS [Concomitant]
     Active Substance: SULFAMETHOXAZOLE\TRIMETHOPRIM
     Indication: COUGH
     Dosage: 1400 MILLIGRAM, BID
     Route: 048
     Dates: start: 20171027, end: 20171027
  24. BACTRIM DS [Concomitant]
     Active Substance: SULFAMETHOXAZOLE\TRIMETHOPRIM
     Dosage: 800 MILLIGRAM, BID
     Route: 065
     Dates: start: 20161215, end: 20161222
  25. HYDROCODONE/ACETAMINOPHEN [Concomitant]
     Active Substance: ACETAMINOPHEN\HYDROCODONE
     Indication: WRIST FRACTURE
     Dosage: UNK, Q4H (5 MG, 325 MG)
     Route: 065
     Dates: start: 20170503, end: 20170509
  26. VITAMIN D3 [Concomitant]
     Active Substance: CHOLECALCIFEROL
     Dosage: 2000 INTERNATIONAL UNIT, BID
     Route: 065
     Dates: start: 20090611, end: 20170627
  27. PULMOZYME [Concomitant]
     Active Substance: DORNASE ALFA
     Indication: CYSTIC FIBROSIS LUNG
     Dosage: 1 MILLIGRAM PER MILLILITRE, QD
     Route: 065
     Dates: start: 19970108
  28. FLONASE [Concomitant]
     Active Substance: FLUTICASONE PROPIONATE
     Indication: RHINITIS ALLERGIC
     Dosage: 50 MICROGRAM, PRN (2 SPRAY EACH NOSTRIL)
     Route: 045
     Dates: start: 20150409, end: 20171214
  29. AZELASTINE. [Concomitant]
     Active Substance: AZELASTINE HYDROCHLORIDE
     Indication: NASAL INFLAMMATION
     Dosage: 137 MCG/ML, BID
     Route: 065
     Dates: start: 20191114
  30. MEROPENEM. [Concomitant]
     Active Substance: MEROPENEM
     Dosage: 2000 MG, Q8H
     Route: 042
     Dates: start: 20181231, end: 20190110
  31. MEROPENEM. [Concomitant]
     Active Substance: MEROPENEM
     Dosage: 2 GRAM, Q8H
     Route: 042
     Dates: start: 20170728, end: 20170810
  32. INFLUENZA VACCINE [Concomitant]
     Active Substance: INFLUENZA VIRUS VACCINE
     Indication: PROPHYLAXIS
     Dosage: 0.5 MILLIGRAM, QD
     Route: 030
     Dates: start: 20171031, end: 20171031
  33. XARELTO [Concomitant]
     Active Substance: RIVAROXABAN
     Dosage: 10 MILLIGRAM, QD (AT SUPPER)
     Route: 048
     Dates: start: 20171031, end: 20171108
  34. SODIUM CHLORIDE. [Concomitant]
     Active Substance: SODIUM CHLORIDE
     Indication: PROPHYLAXIS
     Dosage: 20 MILLILITER, PRN
     Route: 042
     Dates: start: 20200115
  35. ALLEGRA [Concomitant]
     Active Substance: FEXOFENADINE HYDROCHLORIDE
     Indication: SEASONAL ALLERGY
     Dosage: 180 MILLIGRAM, QD
     Route: 048
     Dates: start: 20190515, end: 20191104
  36. HEPARIN [Concomitant]
     Active Substance: HEPARIN SODIUM
     Indication: ANTICOAGULANT THERAPY
     Dosage: 100 UNITS PER ML, PRN
     Route: 042
     Dates: start: 20190809, end: 20190822
  37. DOXYCYCLINE. [Concomitant]
     Active Substance: DOXYCYCLINE
     Indication: UPPER RESPIRATORY TRACT INFECTION
  38. GLUCAGEN [Concomitant]
     Active Substance: GLUCAGON HYDROCHLORIDE
     Indication: BLOOD GLUCOSE ABNORMAL
     Dosage: 1 MILLIGRAM, PRN
     Route: 030
     Dates: start: 20190325, end: 20190328
  39. AVELOX [Concomitant]
     Active Substance: MOXIFLOXACIN HYDROCHLORIDE
     Indication: INFECTIVE PULMONARY EXACERBATION OF CYSTIC FIBROSIS
     Dosage: 400 MILLIGRAM, QD
     Route: 065
     Dates: start: 20160816, end: 20160826
  40. AVELOX [Concomitant]
     Active Substance: MOXIFLOXACIN HYDROCHLORIDE
     Dosage: 400 MILLIGRAM, QD
     Route: 065
     Dates: start: 20161006, end: 20161017
  41. TOBRAMYCIN. [Suspect]
     Active Substance: TOBRAMYCIN
     Indication: CYSTIC FIBROSIS
     Dosage: 112 MICROGRAM PER GRAM, BID
     Route: 055
     Dates: start: 20191017
  42. TOBRAMYCIN. [Suspect]
     Active Substance: TOBRAMYCIN
     Dosage: 112 MICROGRAM PER GRAM, BID
     Route: 055
     Dates: start: 20191212
  43. MEROPENEM. [Concomitant]
     Active Substance: MEROPENEM
     Indication: INFECTIVE PULMONARY EXACERBATION OF CYSTIC FIBROSIS
     Dosage: 2000 MG, TID
     Route: 042
     Dates: start: 20200115
  44. MEROPENEM. [Concomitant]
     Active Substance: MEROPENEM
     Dosage: 2000 MILLIGRAM, Q8H
     Route: 042
     Dates: start: 20190325, end: 20190408
  45. INFLUENZA VACCINE [Concomitant]
     Active Substance: INFLUENZA VIRUS VACCINE
     Indication: IMMUNISATION
     Dosage: 0.5 MILLILITER, ONE DOSE
     Route: 030
     Dates: start: 20191001, end: 20191001
  46. XARELTO [Concomitant]
     Active Substance: RIVAROXABAN
     Indication: THROMBOSIS PROPHYLAXIS
     Dosage: 10 MILLIGRAM, QD
     Route: 048
     Dates: start: 20191021, end: 20191027
  47. SODIUM CHLORIDE. [Concomitant]
     Active Substance: SODIUM CHLORIDE
     Dosage: 100 MILLILITER, QH
     Route: 042
     Dates: start: 20171027, end: 20171028
  48. ALLEGRA [Concomitant]
     Active Substance: FEXOFENADINE HYDROCHLORIDE
     Dosage: 180 MILLIGRAM, QD, PRN
     Route: 048
     Dates: start: 20140217, end: 20191114
  49. GLYCOPYRROLATE. [Concomitant]
     Active Substance: GLYCOPYRROLATE
     Indication: SINUS OPERATION
     Dosage: 0.6 MILLIGRAM, QD
     Route: 042
     Dates: start: 20190705, end: 20190705
  50. BACTRIM DS [Concomitant]
     Active Substance: SULFAMETHOXAZOLE\TRIMETHOPRIM
     Indication: INFECTIVE PULMONARY EXACERBATION OF CYSTIC FIBROSIS
     Dosage: 800 MILLIGRAM, BID
     Route: 065
     Dates: start: 20161020, end: 20161103
  51. BACTRIM DS [Concomitant]
     Active Substance: SULFAMETHOXAZOLE\TRIMETHOPRIM
     Dosage: 800 MILLIGRAM, BID
     Route: 065
     Dates: start: 20170215, end: 20170301
  52. PRILOSEC [Concomitant]
     Active Substance: OMEPRAZOLE MAGNESIUM
     Indication: GASTROOESOPHAGEAL REFLUX DISEASE
     Dosage: 40 MILLIGRAM, BID (BEFORE MEALS)
     Route: 048
     Dates: start: 20011109
  53. XARELTO [Concomitant]
     Active Substance: RIVAROXABAN
     Dosage: 10 MILLIGRAM, QD
     Route: 048
     Dates: start: 20190529, end: 20190602
  54. XARELTO [Concomitant]
     Active Substance: RIVAROXABAN
     Dosage: 10 MILLIGRAM, QD
     Route: 048
     Dates: start: 20190328, end: 20190408
  55. XARELTO [Concomitant]
     Active Substance: RIVAROXABAN
     Dosage: 10 MILLIGRAM, QD
     Route: 048
     Dates: start: 20180514, end: 20180524
  56. XARELTO [Concomitant]
     Active Substance: RIVAROXABAN
     Dosage: 10 MILLIGRAM, QD
     Route: 065
     Dates: start: 20170214, end: 20170302
  57. FENTANYL. [Concomitant]
     Active Substance: FENTANYL
     Indication: ABDOMINAL PAIN
     Dosage: 50 MICROGRAM, PRN
     Route: 042
     Dates: start: 20191016, end: 20191016
  58. ROCURONIUM [Concomitant]
     Active Substance: ROCURONIUM BROMIDE
     Indication: PARALYSIS
  59. ONDANSETRON [Concomitant]
     Active Substance: ONDANSETRON
     Indication: PROCEDURAL NAUSEA
     Dosage: 4 MILLIGRAM, QD
     Route: 042
     Dates: start: 20190705, end: 20190705
  60. TOBRAMYCIN. [Concomitant]
     Active Substance: TOBRAMYCIN
     Indication: INFECTIVE PULMONARY EXACERBATION OF CYSTIC FIBROSIS
     Dosage: 760 MILLIGRAM, QD
     Route: 042
     Dates: start: 20181228, end: 20190108
  61. TOBRAMYCIN. [Concomitant]
     Active Substance: TOBRAMYCIN
     Dosage: 730 MILLIGRAM, QD
     Route: 042
     Dates: start: 20171029, end: 20171030
  62. CEFDINIR. [Concomitant]
     Active Substance: CEFDINIR
     Indication: COUGH
     Dosage: 300 MILLIGRAM, BID
     Route: 048
     Dates: start: 20190319, end: 20190325
  63. DOXYCYCLINE. [Concomitant]
     Active Substance: DOXYCYCLINE
     Indication: SPUTUM INCREASED
     Dosage: 100 MILLIGRAM, BID
     Route: 048
     Dates: start: 20190121, end: 20190123
  64. VANCOMYCIN [Concomitant]
     Active Substance: VANCOMYCIN
     Dosage: 1750 MILLIGRAM, TID
     Route: 042
     Dates: start: 20171029, end: 20171030
  65. CEFEPIME [Concomitant]
     Active Substance: CEFEPIME HYDROCHLORIDE
     Dosage: 2000 MILLIGRAM, QID
     Route: 042
     Dates: start: 20171029, end: 20171031
  66. BACTRIM DS [Concomitant]
     Active Substance: SULFAMETHOXAZOLE\TRIMETHOPRIM
     Indication: NASOPHARYNGITIS
     Dosage: 800-160MG, BID
     Route: 048
     Dates: start: 20180720, end: 20180723
  67. BACTRIM DS [Concomitant]
     Active Substance: SULFAMETHOXAZOLE\TRIMETHOPRIM
     Indication: SPUTUM INCREASED
     Dosage: 1600 MILLIGRAM, BID
     Route: 048
     Dates: start: 20170627, end: 20170711
  68. LINEZOLID. [Concomitant]
     Active Substance: LINEZOLID
     Indication: SINUSITIS
     Dosage: 1200 MILLIGRAM, BID
     Route: 048
     Dates: start: 20171030, end: 20171031
  69. LINEZOLID. [Concomitant]
     Active Substance: LINEZOLID
     Indication: INFECTIVE PULMONARY EXACERBATION OF CYSTIC FIBROSIS
  70. TORADOL [Concomitant]
     Active Substance: KETOROLAC TROMETHAMINE
     Indication: CHEST PAIN
     Dosage: 40 MILLIGRAM, QD
     Route: 042
     Dates: start: 20171027, end: 20171027
  71. MELATONIN [Concomitant]
     Active Substance: MELATONIN
     Indication: INSOMNIA
     Dosage: 3 MILLIGRAM, QD (AT BEDTIME)
     Route: 048
     Dates: start: 20171027, end: 20171031
  72. ACTIGALL [Concomitant]
     Active Substance: URSODIOL
     Indication: PROPHYLAXIS
     Dosage: 300 MILLIGRAM, QD
     Route: 048
     Dates: start: 20060817, end: 20160623
  73. ORKAMBI [Concomitant]
     Active Substance: IVACAFTOR\LUMACAFTOR
     Indication: CYSTIC FIBROSIS LUNG
     Dosage: 2 DOSAGE FORM, BID (WITH HIGH FAT MEAL)
     Route: 065
     Dates: start: 20150811, end: 20180405
  74. XARELTO [Concomitant]
     Active Substance: RIVAROXABAN
     Dosage: 10 MILLIGRAM, QD
     Route: 048
     Dates: start: 20181231, end: 20190110
  75. XARELTO [Concomitant]
     Active Substance: RIVAROXABAN
     Dosage: 10 MILLIGRAM, QD
     Route: 048
     Dates: start: 20180830, end: 20180913
  76. ONDANSETRON [Concomitant]
     Active Substance: ONDANSETRON
     Indication: PROCEDURAL VOMITING
     Dosage: 4 MILLIGRAM, Q4H
     Route: 042
     Dates: start: 20171027, end: 20171031
  77. TOBRAMYCIN. [Concomitant]
     Active Substance: TOBRAMYCIN
     Dosage: 740 MILLIGRAM, QD
     Route: 042
     Dates: start: 20171031, end: 20171108
  78. TOBRAMYCIN. [Concomitant]
     Active Substance: TOBRAMYCIN
     Dosage: 800 MILLIGRAM, QD
     Route: 042
     Dates: start: 20170217, end: 20170221
  79. CEFDINIR. [Concomitant]
     Active Substance: CEFDINIR
     Indication: INFECTIVE PULMONARY EXACERBATION OF CYSTIC FIBROSIS
     Dosage: 300 MILLIGRAM, BID
     Route: 048
     Dates: start: 20181217, end: 20181228
  80. DEXTROSE. [Concomitant]
     Active Substance: DEXTROSE
     Indication: BLOOD GLUCOSE ABNORMAL
     Dosage: 50 MILLILITER, PRN
     Route: 042
     Dates: start: 20190325, end: 20190328
  81. VANCOMYCIN [Concomitant]
     Active Substance: VANCOMYCIN
     Indication: CLOSTRIDIUM DIFFICILE INFECTION
     Dosage: 125 MILLIGRAM, QID
     Route: 048
     Dates: start: 20181115, end: 20181125
  82. VANCOMYCIN [Concomitant]
     Active Substance: VANCOMYCIN
     Indication: INFECTIVE PULMONARY EXACERBATION OF CYSTIC FIBROSIS
     Dosage: 2000 MILLIGRAM, QD
     Route: 042
     Dates: start: 20171028, end: 20171028
  83. CEFEPIME [Concomitant]
     Active Substance: CEFEPIME HYDROCHLORIDE
     Indication: INFECTIVE PULMONARY EXACERBATION OF CYSTIC FIBROSIS
     Dosage: 2 GRAM, Q8H
     Route: 042
     Dates: start: 20180514, end: 20180523
  84. BACTRIM DS [Concomitant]
     Active Substance: SULFAMETHOXAZOLE\TRIMETHOPRIM
     Indication: SINUSITIS
     Dosage: 800 MILLIGRAM, BID
     Route: 048
     Dates: start: 20180430, end: 20180510
  85. LINEZOLID. [Concomitant]
     Active Substance: LINEZOLID
     Indication: NASOPHARYNGITIS
     Dosage: 600 MILLIGRAM, BID
     Route: 048
     Dates: start: 20180723, end: 20180913
  86. ZITHROMAX [Concomitant]
     Active Substance: AZITHROMYCIN DIHYDRATE
     Indication: CYSTIC FIBROSIS LUNG
     Dosage: 250 MILLIGRAM, 3XW (MON, WED, FRI)
     Route: 048
     Dates: start: 20030828, end: 20181213
  87. MEROPENEM. [Concomitant]
     Active Substance: MEROPENEM
     Indication: CYSTIC FIBROSIS LUNG
     Dosage: UNK
     Route: 042
     Dates: start: 20191212
  88. MEROPENEM. [Concomitant]
     Active Substance: MEROPENEM
     Indication: PNEUMONIA
     Dosage: 2 GRAM, Q8H
     Route: 042
     Dates: start: 20191014, end: 20191029
  89. MEROPENEM. [Concomitant]
     Active Substance: MEROPENEM
     Dosage: 2 GRAM, Q8H
     Route: 042
     Dates: start: 20170214, end: 20170302
  90. XARELTO [Concomitant]
     Active Substance: RIVAROXABAN
     Indication: ANTICOAGULANT THERAPY
     Dosage: 10 MILLIGRAM, QD
     Route: 048
     Dates: start: 20200115
  91. SODIUM CHLORIDE. [Concomitant]
     Active Substance: SODIUM CHLORIDE
     Indication: INFECTIVE PULMONARY EXACERBATION OF CYSTIC FIBROSIS
     Dosage: 2 TO 20 MLS, PRN
     Route: 042
     Dates: start: 20190809, end: 20190822
  92. COLISTIN [Concomitant]
     Active Substance: COLISTIN
     Indication: PNEUMONIA
     Dosage: 75 MILLIGRAM, Q8H
     Route: 042
     Dates: start: 20191016, end: 20191016
  93. LOVENOX [Concomitant]
     Active Substance: ENOXAPARIN SODIUM
     Indication: ANTICOAGULANT THERAPY
     Dosage: 40 MILLIGRAM, QD
     Route: 058
     Dates: start: 20191016, end: 20191021
  94. FENTANYL. [Concomitant]
     Active Substance: FENTANYL
     Indication: PROCEDURAL PAIN
     Dosage: 200 MICROGRAM, QD
     Route: 042
     Dates: start: 20190705, end: 20190705
  95. PROPOFOL. [Concomitant]
     Active Substance: PROPOFOL
     Indication: GENERAL ANAESTHESIA
  96. ROCURONIUM [Concomitant]
     Active Substance: ROCURONIUM BROMIDE
     Indication: SINUS OPERATION
     Dosage: 50 MILLIGRAM, QD
     Route: 042
     Dates: start: 20190705, end: 20190705
  97. TOBRAMYCIN. [Concomitant]
     Active Substance: TOBRAMYCIN
     Dosage: 730 MILLIGRAM, QD
     Route: 042
     Dates: start: 20170221, end: 20170302
  98. LIDOCAINE. [Concomitant]
     Active Substance: LIDOCAINE
     Indication: SINUS OPERATION
     Dosage: 100 MILLIGRAM, QD
     Route: 042
     Dates: start: 20190705, end: 20190705
  99. TAMIFLU [Concomitant]
     Active Substance: OSELTAMIVIR PHOSPHATE
     Indication: INFLUENZA
     Dosage: 75 MILLIGRAM, BID
     Route: 048
     Dates: start: 20190401, end: 20190405
  100. ENOXAPARIN [Concomitant]
     Active Substance: ENOXAPARIN
     Indication: INFECTIVE PULMONARY EXACERBATION OF CYSTIC FIBROSIS
     Dosage: 40 MILLIGRAM, QD
     Route: 058
     Dates: start: 20181228, end: 20181231
  101. SEPTRA DS [Concomitant]
     Active Substance: SULFAMETHOXAZOLE\TRIMETHOPRIM
     Indication: SPUTUM INCREASED
     Dosage: 160 MILLIGRAM, BID
     Route: 065
     Dates: start: 20161020, end: 20161108
  102. SEPTRA DS [Concomitant]
     Active Substance: SULFAMETHOXAZOLE\TRIMETHOPRIM
     Dosage: 140 MILLIGRAM, BID
     Route: 065
     Dates: start: 20161215, end: 20161222
  103. XARELTO [Concomitant]
     Active Substance: RIVAROXABAN
     Dosage: 10 MILLIGRAM, QD
     Route: 048
     Dates: start: 20170727, end: 20170806
  104. SALINE [Concomitant]
     Active Substance: SODIUM CHLORIDE
     Indication: PROPHYLAXIS
     Dosage: 10 MILLILITER, PRN
     Route: 042
     Dates: start: 20191016, end: 20191029
  105. PROPOFOL. [Concomitant]
     Active Substance: PROPOFOL
     Indication: SINUS OPERATION
     Dosage: 250 MILLIGRAM, QD
     Route: 042
     Dates: start: 20190705, end: 20190705
  106. DOXYCYCLINE. [Concomitant]
     Active Substance: DOXYCYCLINE
     Indication: SINUSITIS
     Dosage: 100 MILLIGRAM, BID
     Route: 048
     Dates: start: 20181127, end: 20181213
  107. CEFEPIME [Concomitant]
     Active Substance: CEFEPIME HYDROCHLORIDE
     Dosage: 200 MILLIGRAM, QD
     Route: 042
     Dates: start: 20171027, end: 20171027
  108. VITAMIN D3 [Concomitant]
     Active Substance: CHOLECALCIFEROL
     Indication: VITAMIN D DEFICIENCY
     Dosage: 4000 INTERNATIONAL UNIT, QD
     Route: 065
     Dates: start: 20170627
  109. VENTOLIN [Concomitant]
     Active Substance: ALBUTEROL SULFATE
     Indication: DYSPNOEA
     Dosage: 108 MICROGRAM (HFA, INHALE, 2 PUFFS, EVERY 46 HR)
     Route: 065
     Dates: start: 19910425

REACTIONS (2)
  - Infective pulmonary exacerbation of cystic fibrosis [Recovered/Resolved]
  - Pneumonia [Recovered/Resolved]
